FAERS Safety Report 10083287 (Version 1)
Quarter: 2014Q2

REPORT INFORMATION
  Report Type: Spontaneous
  Country: US (occurrence: None)
  Receive Date: 20140415
  Receipt Date: 20140415
  Transmission Date: 20141212
  Serious: Yes (Hospitalization)
  Sender: FDA-Public Use
  Company Number: VAL_03066_2014

PATIENT
  Sex: Female

DRUGS (8)
  1. METOPROLOL [Suspect]
     Dosage: DF
  2. DIOVAN HCT [Suspect]
     Dates: start: 20140331, end: 20140331
  3. HYDROCHLOROTHIAZIDE W/VALSARTAN [Suspect]
     Dosage: DF
  4. TOPPROL [Concomitant]
     Dosage: DF
  5. LOPRESSOR [Concomitant]
  6. PLAVIX [Concomitant]
  7. LASIX [Concomitant]
  8. SYNTHROID [Concomitant]

REACTIONS (5)
  - Blood pressure increased [None]
  - Myocardial infarction [None]
  - Drug hypersensitivity [None]
  - Device malfunction [None]
  - Feeling abnormal [None]
